FAERS Safety Report 20386952 (Version 1)
Quarter: 2022Q1

REPORT INFORMATION
  Report Type: Spontaneous
  Country: US (occurrence: US)
  Receive Date: 20220127
  Receipt Date: 20220127
  Transmission Date: 20220424
  Serious: No
  Sender: FDA-Public Use
  Company Number: US-SANOFI-00943130

PATIENT
  Age: 51 Year
  Sex: Male

DRUGS (1)
  1. DUPIXENT [Suspect]
     Active Substance: DUPILUMAB
     Indication: Dermatitis atopic
     Dosage: DRUG STRUCTURE DOSAGE : 300 MG DRUG INTERVAL DOSAGE : EVERY OTHER WEEK
     Route: 065

REACTIONS (2)
  - Therapeutic product effect decreased [Unknown]
  - Product dose omission issue [Unknown]
